FAERS Safety Report 18281349 (Version 1)
Quarter: 2020Q3

REPORT INFORMATION
  Report Type: Spontaneous
  Country: DE (occurrence: DE)
  Receive Date: 20200918
  Receipt Date: 20200918
  Transmission Date: 20201103
  Serious: Yes (Hospitalization)
  Sender: FDA-Public Use
  Company Number: DE-BAXTER-2020BAX018911

PATIENT
  Age: 41 Year
  Sex: Female

DRUGS (2)
  1. EPIRUBICIN [Suspect]
     Active Substance: EPIRUBICIN
     Indication: PRODUCT USED FOR UNKNOWN INDICATION
     Dosage: NK MG, 30072020
     Route: 065
  2. ENDOXAN 1G [Suspect]
     Active Substance: CYCLOPHOSPHAMIDE
     Indication: PRODUCT USED FOR UNKNOWN INDICATION
     Dosage: NK MG, 30072020
     Route: 065

REACTIONS (12)
  - Hyperhidrosis [Unknown]
  - Dehydration [Unknown]
  - Pyrexia [Unknown]
  - Anaemia [Unknown]
  - Thirst [Unknown]
  - Fatigue [Unknown]
  - General physical health deterioration [Unknown]
  - Gingivitis [Unknown]
  - Pallor [Unknown]
  - Dizziness [Unknown]
  - Asthenia [Unknown]
  - Inflammation [Unknown]
